FAERS Safety Report 12581934 (Version 2)
Quarter: 2016Q3

REPORT INFORMATION
  Report Type: Spontaneous
  Country: SE (occurrence: SE)
  Receive Date: 20160722
  Receipt Date: 20160805
  Transmission Date: 20161109
  Serious: No
  Sender: FDA-Public Use
  Company Number: SE-ASTRAZENECA-2016SE53103

PATIENT
  Sex: Male

DRUGS (1)
  1. CRESTOR [Suspect]
     Active Substance: ROSUVASTATIN CALCIUM
     Dosage: 10.0MG UNKNOWN
     Route: 048
     Dates: start: 2016

REACTIONS (5)
  - Memory impairment [Unknown]
  - Dysphagia [Unknown]
  - Cough [Unknown]
  - Depression [Unknown]
  - Nightmare [Unknown]
